FAERS Safety Report 6568747-9 (Version None)
Quarter: 2010Q1

REPORT INFORMATION
  Report Type: 
  Country: None (occurrence: None)
  Receive Date: 20100203
  Receipt Date: 20100129
  Transmission Date: 20100710
  Serious: Yes (Death, Life-Threatening)
  Sender: FDA-Public Use
  Company Number: PHHY2010JP05353

PATIENT
  Sex: Male
  Weight: 75 kg

DRUGS (40)
  1. ICL670A ICL+DISTAB [Suspect]
     Indication: MULTIPLE MYELOMA
     Dosage: 1250 MG DAILY
     Route: 048
     Dates: start: 20081031, end: 20081114
  2. ICL670A ICL+DISTAB [Suspect]
     Indication: IRON OVERLOAD
     Dosage: 625 MG DAILY
     Route: 048
     Dates: start: 20081115, end: 20081116
  3. SLOW-K [Concomitant]
  4. URSO 250 [Concomitant]
  5. MUCODYNE [Concomitant]
  6. MUCOSTA [Concomitant]
  7. METHYCOBAL [Concomitant]
  8. ENTERONON R [Concomitant]
  9. ADONA [Concomitant]
  10. CLARITH [Concomitant]
  11. PROGRAF [Concomitant]
  12. ITRIZOLE [Concomitant]
  13. MYSLEE [Concomitant]
  14. PARIET [Concomitant]
  15. PREDONINE [Concomitant]
  16. DIART [Concomitant]
  17. ACTONEL [Concomitant]
  18. BORRAZA-G [Concomitant]
  19. BAKTAR [Concomitant]
  20. HIRUDOID [Concomitant]
  21. KENALOG [Concomitant]
  22. MS ONSHIPPU [Concomitant]
  23. BUFFERIN [Concomitant]
     Dosage: 330 MG, UNK
  24. MAGLAX [Concomitant]
  25. VITAJECT [Concomitant]
  26. POTASSIUM CHLORIDE [Concomitant]
  27. ELEMENMIC [Concomitant]
  28. POLARAMINE [Concomitant]
  29. KN NO.3 [Concomitant]
  30. LASIX [Concomitant]
  31. HEP-FLUSH [Concomitant]
  32. DENOSINE [Concomitant]
  33. WATER FOR INJECTION [Concomitant]
  34. SODIUM CHLORIDE SOLUTION [Concomitant]
  35. GRAN [Concomitant]
  36. MEROPEN [Concomitant]
  37. SOLU-CORTEF [Concomitant]
  38. HYALEIN [Concomitant]
  39. NEOPAREN NO.1 [Concomitant]
  40. NEOPAREN NO.2 [Concomitant]

REACTIONS (4)
  - CONDITION AGGRAVATED [None]
  - CYTOMEGALOVIRUS ENTEROCOLITIS [None]
  - GASTROINTESTINAL HAEMORRHAGE [None]
  - PNEUMONIA [None]
